FAERS Safety Report 4503532-0 (Version None)
Quarter: 2004Q4

REPORT INFORMATION
  Report Type: 
  Country: None (occurrence: None)
  Receive Date: 20041117
  Receipt Date: 20040726
  Transmission Date: 20050328
  Serious: Yes (Hospitalization)
  Sender: FDA-Public Use
  Company Number: PHNU2004DE02674

PATIENT
  Age: 78 Year
  Sex: Female

DRUGS (6)
  1. GLEEVEC [Suspect]
     Indication: CHRONIC MYELOID LEUKAEMIA
     Dosage: 400MG/DAY
     Route: 048
     Dates: start: 20011201, end: 20040722
  2. NOVALGIN [Concomitant]
     Route: 065
     Dates: start: 20040722
  3. AVELOX [Concomitant]
     Dosage: 400 MG, QD
     Route: 048
     Dates: start: 20040701
  4. LASIX [Concomitant]
     Dosage: 40 MG, QD
     Route: 048
     Dates: start: 20040701
  5. L-THYROXIN ^HENNING BERLIN^ [Concomitant]
     Dosage: 150MG/DAY
     Route: 048
     Dates: start: 20040701
  6. SEMPERA [Concomitant]
     Dosage: 20 ML, BID
     Route: 048
     Dates: start: 20040701

REACTIONS (14)
  - ANURIA [None]
  - BLOOD CREATININE INCREASED [None]
  - C-REACTIVE PROTEIN INCREASED [None]
  - CAPILLARY LEAK SYNDROME [None]
  - DIALYSIS [None]
  - DYSPNOEA [None]
  - FALL [None]
  - GENERALISED OEDEMA [None]
  - INTERVERTEBRAL DISCITIS [None]
  - MUSCLE CRAMP [None]
  - PYOTHORAX [None]
  - RENAL FAILURE ACUTE [None]
  - SYSTEMIC INFLAMMATORY RESPONSE SYNDROME [None]
  - THORACIC VERTEBRAL FRACTURE [None]
